FAERS Safety Report 10526837 (Version 1)
Quarter: 2014Q4

REPORT INFORMATION
  Report Type: Spontaneous
  Country: US (occurrence: US)
  Receive Date: 20141020
  Receipt Date: 20141020
  Transmission Date: 20150528
  Serious: No
  Sender: FDA-Public Use
  Company Number: US-009507513-1410USA004931

PATIENT
  Age: 20 Year
  Sex: Female
  Weight: 77.98 kg

DRUGS (1)
  1. NEXPLANON [Suspect]
     Active Substance: ETONOGESTREL
     Indication: CONTRACEPTION
     Dosage: DOSE/ FREQUENCY-1 ROD/3 YEARS
     Route: 059

REACTIONS (2)
  - Implant site discolouration [Not Recovered/Not Resolved]
  - Implant site infection [Not Recovered/Not Resolved]
